FAERS Safety Report 21198188 (Version 1)
Quarter: 2022Q3

REPORT INFORMATION
  Report Type: Spontaneous
  Country: TR (occurrence: TR)
  Receive Date: 20220811
  Receipt Date: 20220811
  Transmission Date: 20221027
  Serious: Yes (Other)
  Sender: FDA-Public Use
  Company Number: TR-STRIDES ARCOLAB LIMITED-2022SP010129

PATIENT
  Age: 17 Year
  Sex: Male

DRUGS (1)
  1. OXYBUTYNIN [Suspect]
     Active Substance: OXYBUTYNIN
     Indication: Product used for unknown indication
     Dosage: UNK, ABUSING AT LEAST 50 MG/DAY; THE ABUSE HAD A WAXING AND WANING PATTERN
     Route: 065

REACTIONS (7)
  - Substance use disorder [Unknown]
  - Drug abuse [Unknown]
  - Weight decreased [Unknown]
  - Behaviour disorder [Unknown]
  - Depressive symptom [Recovered/Resolved]
  - Anxiety [Recovered/Resolved]
  - Mydriasis [Unknown]
